FAERS Safety Report 7267952 (Version 6)
Quarter: 2012Q4

REPORT INFORMATION
  Report Type: 
  Country: CA (occurrence: CA)
  Receive Date: 20100201
  Receipt Date: 20121105
  Transmission Date: 20130627
  Serious: Yes (Other)
  Sender: FDA-Public Use
  Company Number: CA-ROCHE-GNE297400

PATIENT
  Age: 60 None
  Sex: Male
  Weight: 83.19 kg

DRUGS (10)
  1. XOLAIR [Suspect]
     Indication: ASTHMA
     Route: 058
     Dates: start: 20090921
  2. XOLAIR [Suspect]
     Route: 058
     Dates: start: 20100119
  3. XOLAIR [Suspect]
     Route: 058
     Dates: start: 20101105
  4. ADVAIR [Concomitant]
     Indication: PRODUCT USED FOR UNKNOWN INDICATION
  5. ALVESCO [Concomitant]
     Indication: PRODUCT USED FOR UNKNOWN INDICATION
  6. NASONEX [Concomitant]
     Indication: PRODUCT USED FOR UNKNOWN INDICATION
  7. SINGULAIR [Concomitant]
     Indication: PRODUCT USED FOR UNKNOWN INDICATION
  8. NORVASC [Concomitant]
     Indication: PRODUCT USED FOR UNKNOWN INDICATION
  9. ALTACE [Concomitant]
     Indication: PRODUCT USED FOR UNKNOWN INDICATION
  10. DIOVAN [Concomitant]
     Indication: PRODUCT USED FOR UNKNOWN INDICATION

REACTIONS (9)
  - Sinusitis [Unknown]
  - Wheezing [Unknown]
  - Productive cough [Unknown]
  - Sputum discoloured [Unknown]
  - Influenza [Unknown]
  - Nasopharyngitis [Unknown]
  - Dyspnoea [Unknown]
  - Oedema peripheral [Unknown]
  - Joint swelling [Unknown]
